FAERS Safety Report 5102153-9 (Version None)
Quarter: 2006Q3

REPORT INFORMATION
  Report Type: 
  Country: None (occurrence: None)
  Receive Date: 20060912
  Receipt Date: 20060830
  Transmission Date: 20061208
  Serious: Yes (Hospitalization, Other)
  Sender: FDA-Public Use
  Company Number: US-RB-3823-2006

PATIENT
  Sex: Male
  Weight: 68.1 kg

DRUGS (9)
  1. SUBOXONE [Suspect]
     Indication: DRUG DEPENDENCE
     Route: 060
     Dates: start: 20060710, end: 20060716
  2. SUBOXONE [Suspect]
     Route: 060
     Dates: start: 20060717, end: 20060723
  3. SUBOXONE [Suspect]
     Route: 060
     Dates: start: 20060724, end: 20060730
  4. SUBOXONE [Suspect]
     Route: 060
     Dates: start: 20060730, end: 20060806
  5. SUBOXONE [Suspect]
     Route: 060
     Dates: start: 20060807, end: 20060813
  6. SUBOXONE [Suspect]
     Route: 060
     Dates: start: 20060823, end: 20060823
  7. SUBOXONE [Suspect]
     Route: 060
     Dates: start: 20060829, end: 20060829
  8. FLUOXETINE HYDROCHLORIDE [Concomitant]
     Indication: ANXIETY
     Route: 048
     Dates: start: 20060823
  9. ALPRAZOLAM [Concomitant]
     Indication: ANXIETY
     Dates: start: 20060823

REACTIONS (8)
  - ANXIETY [None]
  - BLOOD GLUCOSE INCREASED [None]
  - BLOOD PRESSURE INCREASED [None]
  - COLD SWEAT [None]
  - DIARRHOEA [None]
  - MUSCLE SPASMS [None]
  - NAUSEA [None]
  - TREMOR [None]
